FAERS Safety Report 16326824 (Version 3)
Quarter: 2019Q3

REPORT INFORMATION
  Report Type: Spontaneous
  Country: BR (occurrence: BR)
  Receive Date: 20190517
  Receipt Date: 20190806
  Transmission Date: 20191004
  Serious: Yes (Hospitalization, Other)
  Sender: FDA-Public Use
  Company Number: BR-SEATTLE GENETICS-2019SGN01667

PATIENT
  Age: 27 Year
  Sex: Female

DRUGS (4)
  1. ADCETRIS [Suspect]
     Active Substance: BRENTUXIMAB VEDOTIN
     Indication: HODGKIN^S DISEASE
     Dosage: 1.2 MILLIGRAM/KILOGRAM
     Route: 042
  2. VINBLASTINE [Concomitant]
     Active Substance: VINBLASTINE
     Indication: HODGKIN^S DISEASE
     Dosage: UNK
     Route: 042
  3. DACARBAZINE. [Concomitant]
     Active Substance: DACARBAZINE
     Indication: HODGKIN^S DISEASE
     Dosage: UNK
     Route: 042
  4. DOXORUBICIN                        /00330901/ [Concomitant]
     Indication: HODGKIN^S DISEASE
     Dosage: UNK
     Route: 042

REACTIONS (11)
  - Pyrexia [Unknown]
  - Pulmonary oedema [Unknown]
  - Fluid retention [Unknown]
  - Hepatitis [Recovered/Resolved]
  - Cytomegalovirus test positive [Unknown]
  - Lung infiltration [Unknown]
  - Off label use [Unknown]
  - Stomatitis [Unknown]
  - Hypoxia [Unknown]
  - Hepatic enzyme abnormal [Recovered/Resolved]
  - Pneumonia [Unknown]

NARRATIVE: CASE EVENT DATE: 2019
